FAERS Safety Report 6274784-4 (Version None)
Quarter: 2009Q3

REPORT INFORMATION
  Report Type: 
  Country: None (occurrence: None)
  Receive Date: 20090717
  Receipt Date: 20090701
  Transmission Date: 20100115
  Serious: Yes (Death)
  Sender: FDA-Public Use
  Company Number: IMP_04480_2009

PATIENT
  Age: 24 Year
  Sex: Female

DRUGS (2)
  1. BUPROPION HCL [Suspect]
     Indication: DRUG USE FOR UNKNOWN INDICATION
     Dosage: (DF)
  2. ETHANOL [Concomitant]

REACTIONS (3)
  - ALCOHOL USE [None]
  - CARDIO-RESPIRATORY ARREST [None]
  - OVERDOSE [None]
